FAERS Safety Report 15325704 (Version 1)
Quarter: 2018Q3

REPORT INFORMATION
  Report Type: Spontaneous
  Country: US (occurrence: US)
  Receive Date: 20180828
  Receipt Date: 20180828
  Transmission Date: 20181010
  Serious: Yes (Other)
  Sender: FDA-Public Use
  Company Number: US-ELI_LILLY_AND_COMPANY-US201808011207

PATIENT
  Sex: Male

DRUGS (1)
  1. HUMULIN R U?500 [Suspect]
     Active Substance: INSULIN HUMAN
     Indication: INSULIN RESISTANCE SYNDROME
     Dosage: 500 U, UNKNOWN
     Route: 065

REACTIONS (2)
  - Urticaria [Unknown]
  - Insulin resistance syndrome [Not Recovered/Not Resolved]
